FAERS Safety Report 18643119 (Version 1)
Quarter: 2020Q4

REPORT INFORMATION
  Report Type: Spontaneous
  Country: US (occurrence: US)
  Receive Date: 20201218
  Receipt Date: 20201218
  Transmission Date: 20210114
  Serious: No
  Sender: FDA-Public Use
  Company Number: None

PATIENT
  Age: 65 Year
  Sex: Male
  Weight: 102 kg

DRUGS (1)
  1. CEFEPIME (CEFEPIME HCL 1GM/VIL INJ) [Suspect]
     Active Substance: CEFEPIME HYDROCHLORIDE
     Indication: INFECTION
     Dosage: ?          OTHER STRENGTH:1GM/VIL;?
     Dates: start: 20200703, end: 20200713

REACTIONS (2)
  - Acute kidney injury [None]
  - Nephritis allergic [None]

NARRATIVE: CASE EVENT DATE: 20200713
